FAERS Safety Report 21286422 (Version 1)
Quarter: 2022Q3

REPORT INFORMATION
  Report Type: Spontaneous
  Country: CA (occurrence: CA)
  Receive Date: 20220902
  Receipt Date: 20220902
  Transmission Date: 20221026
  Serious: Yes (Disabling)
  Sender: FDA-Public Use
  Company Number: CA-PFIZER INC-202201104487

PATIENT
  Age: 76 Year
  Sex: Female
  Weight: 49 kg

DRUGS (5)
  1. LIPITOR [Suspect]
     Active Substance: ATORVASTATIN CALCIUM
     Indication: Blood cholesterol
     Dosage: 80 MG, 1X/DAY
     Route: 048
  2. ASPIRIN [Concomitant]
     Active Substance: ASPIRIN
  3. ELIQUIS [Concomitant]
     Active Substance: APIXABAN
  4. PANTOPRAZOLE [Concomitant]
     Active Substance: PANTOPRAZOLE
  5. SYNTHROID [Concomitant]
     Active Substance: LEVOTHYROXINE SODIUM

REACTIONS (2)
  - Muscular weakness [Recovering/Resolving]
  - Pollakiuria [Recovering/Resolving]
